FAERS Safety Report 24766482 (Version 3)
Quarter: 2025Q2

REPORT INFORMATION
  Report Type: Spontaneous
  Country: GB (occurrence: GB)
  Receive Date: 20241223
  Receipt Date: 20250609
  Transmission Date: 20250717
  Serious: Yes (Life-Threatening, Hospitalization, Other)
  Sender: DR REDDYS
  Company Number: None

PATIENT
  Age: 45 Year
  Sex: Male

DRUGS (3)
  1. PREGABALIN [Suspect]
     Active Substance: PREGABALIN
     Indication: Product used for unknown indication
  2. METHADONE [Suspect]
     Active Substance: METHADONE HYDROCHLORIDE
     Indication: Toxicity to various agents
  3. BENZODIAZEPINE [Concomitant]
     Active Substance: BENZODIAZEPINE
     Indication: Toxicity to various agents

REACTIONS (2)
  - Overdose [Unknown]
  - CHANTER syndrome [Unknown]
